FAERS Safety Report 17299878 (Version 1)
Quarter: 2020Q1

REPORT INFORMATION
  Report Type: Spontaneous
  Country: US (occurrence: US)
  Receive Date: 20200122
  Receipt Date: 20200122
  Transmission Date: 20200409
  Serious: Yes (Life-Threatening, Hospitalization)
  Sender: FDA-Public Use
  Company Number: US-APOTEX-2020AP006714

PATIENT
  Age: 34 Year
  Sex: Female

DRUGS (11)
  1. AMITRIPTYLINE [Concomitant]
     Active Substance: AMITRIPTYLINE
     Indication: PRODUCT USED FOR UNKNOWN INDICATION
     Dosage: 10 MG, QD
     Route: 065
  2. METHYLPREDNISOLONE. [Concomitant]
     Active Substance: METHYLPREDNISOLONE
     Indication: ATYPICAL PNEUMONIA
  3. ALBUTEROL. [Suspect]
     Active Substance: ALBUTEROL
     Indication: BRONCHITIS
     Dosage: UNK
     Route: 055
  4. FLUOXETINE [Concomitant]
     Active Substance: FLUOXETINE HYDROCHLORIDE
     Indication: PRODUCT USED FOR UNKNOWN INDICATION
     Dosage: 20 MG, QD
     Route: 065
  5. CEFIXIME. [Concomitant]
     Active Substance: CEFIXIME
     Indication: ATYPICAL PNEUMONIA
  6. MULTIVITAMIN                       /00097801/ [Concomitant]
     Active Substance: VITAMINS
     Indication: PRODUCT USED FOR UNKNOWN INDICATION
     Dosage: UNK, QD
     Route: 065
  7. METHYLPREDNISOLONE. [Concomitant]
     Active Substance: METHYLPREDNISOLONE
     Indication: BRONCHITIS
     Dosage: 4 MG, UNK (4-MG DOSE PACK)
     Route: 065
  8. SPIRONOLACTONE. [Concomitant]
     Active Substance: SPIRONOLACTONE
     Indication: FAMILIAL PERIODIC PARALYSIS
     Dosage: 100 MG, QD
     Route: 065
  9. ALBUTEROL. [Suspect]
     Active Substance: ALBUTEROL
     Indication: ATYPICAL PNEUMONIA
     Dosage: 2.5 MG, UNK (NEBULIZER TREATMENT)
     Route: 055
  10. ALBUTEROL. [Suspect]
     Active Substance: ALBUTEROL
     Dosage: 2 DF, 2 DOSES (INHALED TWO PUFFS: 90 MCG PER INHALATION))
     Route: 055
  11. CEFIXIME. [Concomitant]
     Active Substance: CEFIXIME
     Indication: BRONCHITIS
     Dosage: 400 MG, QD
     Route: 048

REACTIONS (2)
  - Familial periodic paralysis [Recovered/Resolved]
  - Condition aggravated [Recovered/Resolved]
